FAERS Safety Report 9886002 (Version 1)
Quarter: 2014Q1

REPORT INFORMATION
  Report Type: Report from Study
  Country: JP (occurrence: JP)
  Receive Date: 20140210
  Receipt Date: 20140210
  Transmission Date: 20141002
  Serious: Yes (Hospitalization)
  Sender: FDA-Public Use
  Company Number: JP-GLAXOSMITHKLINE-B0967311A

PATIENT
  Sex: Female
  Weight: 42 kg

DRUGS (4)
  1. VOTRIENT 200MG [Suspect]
     Indication: LIPOSARCOMA
     Dosage: 400MG PER DAY
     Route: 048
     Dates: start: 20130911, end: 20130930
  2. VOTRIENT 200MG [Suspect]
     Indication: LIPOSARCOMA
     Dosage: 600MG PER DAY
     Route: 048
     Dates: start: 20131001, end: 20131026
  3. UNKNOWN DRUG [Concomitant]
     Indication: HYPERTENSION
     Route: 065
  4. UNKNOWN DRUG [Concomitant]
     Route: 065

REACTIONS (2)
  - Vesicocutaneous fistula [Recovered/Resolved]
  - Hypertension [Recovered/Resolved]
